FAERS Safety Report 5756671-0 (Version None)
Quarter: 2008Q2

REPORT INFORMATION
  Report Type: 
  Country: None (occurrence: None)
  Receive Date: 20080603
  Receipt Date: 20080527
  Transmission Date: 20081010
  Serious: Yes (Other)
  Sender: FDA-Public Use
  Company Number: US-BAYER-200821801NA

PATIENT
  Age: 16 Year
  Sex: Male

DRUGS (2)
  1. AVELOX [Suspect]
     Indication: SINUSITIS
     Route: 048
  2. ZITHROMAX [Concomitant]
     Indication: SINUSITIS

REACTIONS (1)
  - RESPIRATORY DISTRESS [None]
